FAERS Safety Report 18847110 (Version 6)
Quarter: 2022Q1

REPORT INFORMATION
  Report Type: Spontaneous
  Country: US (occurrence: US)
  Receive Date: 20210204
  Receipt Date: 20220131
  Transmission Date: 20220423
  Serious: No
  Sender: FDA-Public Use
  Company Number: US-PFIZER INC-2021000510

PATIENT
  Age: 76 Year
  Sex: Female

DRUGS (2)
  1. IBRANCE [Suspect]
     Active Substance: PALBOCICLIB
     Indication: Pulmonary mass
     Dosage: 125 MG
  2. IBRANCE [Suspect]
     Active Substance: PALBOCICLIB
     Dosage: 100 MG

REACTIONS (7)
  - Off label use [Unknown]
  - Full blood count abnormal [Unknown]
  - Hepatic enzyme abnormal [Unknown]
  - Panic disorder [Unknown]
  - White blood cell count decreased [Not Recovered/Not Resolved]
  - Rash [Unknown]
  - Blister [Unknown]
